FAERS Safety Report 10290731 (Version 4)
Quarter: 2014Q3

REPORT INFORMATION
  Report Type: Spontaneous
  Country: IT (occurrence: None)
  Receive Date: 20140708
  Receipt Date: 20140714
  Transmission Date: 20150326
  Serious: Yes (Hospitalization)
  Sender: FDA-Public Use
  Company Number: AUR-APL-2014-07033

PATIENT
  Age: 74 Year
  Sex: Male

DRUGS (5)
  1. DOXAZOSIN MESILATE [Concomitant]
     Active Substance: DOXAZOSIN MESYLATE
  2. METFORMIN [Suspect]
     Active Substance: METFORMIN HYDROCHLORIDE
     Indication: DIABETES MELLITUS
     Dosage: 1 DF, CYCLICAL
     Route: 048
     Dates: start: 20140101, end: 20140618
  3. AMIODARONE HYDROCHLORIDE (AMIODARONE HYDROCHLORIDE) [Concomitant]
     Active Substance: AMIODARONE HYDROCHLORIDE
  4. TAMSULOSIN HYDROCHLORIDE (TAMSULOSIN HYDROCHLORIDE) [Concomitant]
     Active Substance: TAMSULOSIN HYDROCHLORIDE
  5. LASIX [Concomitant]
     Active Substance: FUROSEMIDE

REACTIONS (4)
  - Treatment noncompliance [None]
  - Medication error [None]
  - Incorrect drug administration duration [None]
  - Lactic acidosis [None]

NARRATIVE: CASE EVENT DATE: 20140618
